FAERS Safety Report 6677205-2 (Version None)
Quarter: 2010Q2

REPORT INFORMATION
  Report Type: 
  Country: None (occurrence: None)
  Receive Date: 20100412
  Receipt Date: 20100405
  Transmission Date: 20101027
  Serious: Yes (Death, Hospitalization)
  Sender: FDA-Public Use
  Company Number: US-BRISTOL-MYERS SQUIBB COMPANY-14978225

PATIENT
  Age: 66 Year
  Sex: Male

DRUGS (6)
  1. SPRYCEL [Suspect]
     Indication: CHRONIC MYELOID LEUKAEMIA
     Route: 048
     Dates: start: 20091210
  2. CYCLOPHOSPHAMIDE [Suspect]
  3. DOXORUBICIN HCL [Suspect]
  4. VINCRISTINE [Suspect]
  5. RITUXAN [Suspect]
  6. DEXAMETHASONE [Suspect]

REACTIONS (2)
  - RECTAL HAEMORRHAGE [None]
  - SEPSIS [None]
